FAERS Safety Report 9262834 (Version 1)
Quarter: 2013Q2

REPORT INFORMATION
  Report Type: Report from Study
  Country: AR (occurrence: AR)
  Receive Date: 20130430
  Receipt Date: 20130430
  Transmission Date: 20140414
  Serious: Yes (Other)
  Sender: FDA-Public Use
  Company Number: PHHY2013AR042253

PATIENT
  Sex: Female

DRUGS (2)
  1. DIOVAN [Suspect]
     Indication: HYPERTENSION
     Dosage: 0.5 DF (160MG),  DAILY
     Route: 048
     Dates: start: 2007
  2. METFORMIN [Concomitant]
     Indication: DIABETES MELLITUS
     Dosage: UNK UKN, UNK

REACTIONS (4)
  - Pulmonary mass [Recovering/Resolving]
  - Bone neoplasm [Not Recovered/Not Resolved]
  - Cyst [Not Recovered/Not Resolved]
  - Wrong technique in drug usage process [Unknown]
